FAERS Safety Report 7997358-3 (Version None)
Quarter: 2011Q4

REPORT INFORMATION
  Report Type: 
  Country: None (occurrence: None)
  Receive Date: 20111221
  Receipt Date: 20111219
  Transmission Date: 20120403
  Serious: Yes (Death)
  Sender: FDA-Public Use
  Company Number: NZ-B.I. PHARMACEUTICALS,INC./RIDGEFIELD-2011-AU-02096AU

PATIENT
  Sex: Female

DRUGS (6)
  1. METOPROLOL SUCCINATE [Suspect]
     Dosage: 47.5 MG
  2. METOPROLOL SUCCINATE [Suspect]
     Dosage: 95 MG
     Dates: start: 20110818, end: 20110822
  3. PRADAXA [Suspect]
     Indication: ATRIAL FIBRILLATION
     Dosage: 300 MG
     Dates: start: 20110810
  4. SIMVASTATIN [Concomitant]
     Dates: start: 20100610
  5. PRADAXA [Suspect]
     Dosage: 300 MG
  6. ATENOLOL [Concomitant]
     Dosage: 75 MG
     Dates: start: 20110822

REACTIONS (7)
  - LIVER FUNCTION TEST ABNORMAL [None]
  - INCONTINENCE [None]
  - INSOMNIA [None]
  - DEATH [None]
  - MICTURITION URGENCY [None]
  - DYSPNOEA [None]
  - GASTROOESOPHAGEAL REFLUX DISEASE [None]
